FAERS Safety Report 12617674 (Version 4)
Quarter: 2017Q2

REPORT INFORMATION
  Report Type: Report from Study
  Country: US (occurrence: US)
  Receive Date: 20160803
  Receipt Date: 20170504
  Transmission Date: 20170830
  Serious: Yes (Hospitalization, Other)
  Sender: FDA-Public Use
  Company Number: US-AMGEN-USASL2016096898

PATIENT
  Age: 60 Year
  Sex: Male

DRUGS (12)
  1. ENBREL [Suspect]
     Active Substance: ETANERCEPT
     Indication: PSORIASIS
     Dosage: 50 MG, 2 TIMES/WK
     Route: 065
     Dates: start: 200406
  2. ALBUTEROL. [Concomitant]
     Active Substance: ALBUTEROL
     Dosage: UNK UNK, QID
  3. COUMADIN [Suspect]
     Active Substance: WARFARIN SODIUM
     Indication: EMBOLISM
     Dosage: 2 MG, UNK
     Route: 065
  4. CERA [Concomitant]
     Dosage: UNK
  5. ENBREL [Suspect]
     Active Substance: ETANERCEPT
     Dosage: 50 MG, QWK
     Route: 065
  6. PERCOCET [Concomitant]
     Active Substance: ACETAMINOPHEN\OXYCODONE HYDROCHLORIDE
     Indication: BACK PAIN
  7. COUMADIN [Suspect]
     Active Substance: WARFARIN SODIUM
     Dosage: 3 MG, UNK
     Route: 065
  8. HEPARIN [Concomitant]
     Active Substance: HEPARIN SODIUM
  9. ENBREL [Suspect]
     Active Substance: ETANERCEPT
     Dosage: 50 MG, 2 TIMES/WK
     Route: 065
  10. TRIAMCINOLONE [Concomitant]
     Active Substance: TRIAMCINOLONE
     Dosage: UNK
  11. JANTOVEN [Suspect]
     Active Substance: WARFARIN SODIUM
     Indication: EMBOLISM
     Dosage: 2 MG, UNK
     Route: 065
  12. JANTOVEN [Suspect]
     Active Substance: WARFARIN SODIUM
     Dosage: 3 MG, UNK
     Route: 065

REACTIONS (36)
  - Oedema [Unknown]
  - Poor peripheral circulation [Unknown]
  - Abasia [Unknown]
  - Infection [Unknown]
  - Dyspnoea [Unknown]
  - Psoriasis [Recovering/Resolving]
  - Hospitalisation [Unknown]
  - Amnesia [Unknown]
  - Memory impairment [Unknown]
  - Genitourinary operation [Unknown]
  - Incorrect product storage [Unknown]
  - Arthralgia [Unknown]
  - Skin haemorrhage [Recovering/Resolving]
  - Anxiety [Unknown]
  - Wrong technique in product usage process [Unknown]
  - Drug dose omission [Unknown]
  - Respiratory tract infection [Unknown]
  - Procedural haemorrhage [Unknown]
  - Embolism [Unknown]
  - Pulmonary haemorrhage [Unknown]
  - Genital injury [Unknown]
  - Haematoma [Unknown]
  - Ulcer [Unknown]
  - Back pain [Unknown]
  - Skin atrophy [Unknown]
  - Myocardial infarction [Unknown]
  - Coma [Unknown]
  - Diabetes mellitus [Unknown]
  - Arterial injury [Unknown]
  - Cardiac arrest [Unknown]
  - Carotid artery stenosis [Unknown]
  - Sternal fracture [Unknown]
  - Internal injury [Unknown]
  - Musculoskeletal disorder [Unknown]
  - Mobility decreased [Unknown]
  - Injection site haemorrhage [Unknown]

NARRATIVE: CASE EVENT DATE: 2006
